FAERS Safety Report 23116296 (Version 1)
Quarter: 2023Q4

REPORT INFORMATION
  Report Type: Report from Study
  Country: NL (occurrence: NL)
  Receive Date: 20231027
  Receipt Date: 20231027
  Transmission Date: 20240110
  Serious: Yes (Other)
  Sender: FDA-Public Use
  Company Number: NL-SA-2023SA327503

PATIENT
  Sex: Female

DRUGS (2)
  1. DUPILUMAB [Suspect]
     Active Substance: DUPILUMAB
     Indication: Dermatitis atopic
     Dosage: LOADING DOSE 600 MG
     Route: 058
  2. DUPILUMAB [Suspect]
     Active Substance: DUPILUMAB
     Dosage: STANDARD DOSE 300 MG, QOW
     Route: 058

REACTIONS (6)
  - Cutaneous T-cell lymphoma [Unknown]
  - Pseudolymphoma [Unknown]
  - Acanthosis [Unknown]
  - Parakeratosis [Unknown]
  - Eczema [Unknown]
  - Lymphocytic infiltration [Unknown]
